FAERS Safety Report 11001409 (Version 1)
Quarter: 2015Q2

REPORT INFORMATION
  Report Type: Spontaneous
  Country: US (occurrence: US)
  Receive Date: 20150408
  Receipt Date: 20150408
  Transmission Date: 20150821
  Serious: No
  Sender: FDA-Public Use
  Company Number: US-SA-2015SA031466

PATIENT
  Age: 17 Year
  Sex: Female

DRUGS (1)
  1. ALLEGRA [Suspect]
     Active Substance: FEXOFENADINE HYDROCHLORIDE
     Indication: HYPERSENSITIVITY
     Dosage: 2 ALLEGRA ALLERGY 24 HOUR OTC IN ^TWO MINUTES^ ACCIDENTALLY.
     Route: 048

REACTIONS (1)
  - Extra dose administered [Unknown]
